FAERS Safety Report 13237984 (Version 1)
Quarter: 2017Q1

REPORT INFORMATION
  Report Type: Spontaneous
  Country: CA (occurrence: CA)
  Receive Date: 20170216
  Receipt Date: 20170216
  Transmission Date: 20170428
  Serious: Yes (Death)
  Sender: FDA-Public Use
  Company Number: CA-TEVA-739270ACC

PATIENT
  Sex: Female

DRUGS (5)
  1. TRAZODONE [Concomitant]
     Active Substance: TRAZODONE HYDROCHLORIDE
  2. VENLAFAXINE XR [Concomitant]
     Active Substance: VENLAFAXINE HYDROCHLORIDE
     Dosage: 15 MILLIGRAM DAILY;
  3. LITHIUM. [Concomitant]
     Active Substance: LITHIUM
  4. VENLAFAXINE XR [Concomitant]
     Active Substance: VENLAFAXINE HYDROCHLORIDE
     Dosage: 10 MILLIGRAM DAILY;
  5. OLANZAPINE. [Suspect]
     Active Substance: OLANZAPINE
     Route: 065

REACTIONS (3)
  - Cardio-respiratory arrest [Fatal]
  - Respiratory failure [Fatal]
  - Altered state of consciousness [Fatal]
